FAERS Safety Report 5484352-X (Version None)
Quarter: 2007Q4

REPORT INFORMATION
  Report Type: 
  Country: None (occurrence: None)
  Receive Date: 20071012
  Receipt Date: 20071005
  Transmission Date: 20080405
  Serious: Yes (Other)
  Sender: FDA-Public Use
  Company Number: US-GILEAD-2007-0013743

PATIENT
  Sex: Male

DRUGS (2)
  1. TRUVADA [Suspect]
  2. REYATAZ [Concomitant]

REACTIONS (1)
  - NEPHROLITHIASIS [None]
